FAERS Safety Report 5609151-7 (Version None)
Quarter: 2008Q1

REPORT INFORMATION
  Report Type: 
  Country: None (occurrence: None)
  Receive Date: 20080130
  Receipt Date: 20080130
  Transmission Date: 20080703
  Serious: Yes (Life-Threatening, Hospitalization)
  Sender: FDA-Public Use
  Company Number: None

PATIENT
  Sex: Female

DRUGS (2)
  1. AMBIEN CR [Suspect]
     Indication: INSOMNIA
     Dosage: 12.5MG  ONE HS  PO
     Route: 048
     Dates: start: 20071006, end: 20071207
  2. CITALOPRAM,  40MG,  AUROBINDO PHARMA [Suspect]
     Indication: DEPRESSION
     Dosage: 40MG  ONCE  PO
     Route: 048
     Dates: start: 20060701, end: 20071201

REACTIONS (4)
  - AMNESIA [None]
  - GUN SHOT WOUND [None]
  - INTENTIONAL SELF-INJURY [None]
  - SUICIDE ATTEMPT [None]
